FAERS Safety Report 17152766 (Version 1)
Quarter: 2019Q4

REPORT INFORMATION
  Report Type: Spontaneous
  Country: US (occurrence: US)
  Receive Date: 20191213
  Receipt Date: 20191213
  Transmission Date: 20200122
  Serious: No
  Sender: FDA-Public Use
  Company Number: US-NOVOPROD-681667

PATIENT
  Sex: Female

DRUGS (3)
  1. HUMALOG [Suspect]
     Active Substance: INSULIN LISPRO
     Indication: TYPE 1 DIABETES MELLITUS
     Dosage: 10 TO 14 AT EACH MEAL
     Route: 058
     Dates: start: 201906
  2. HUMALOG [Suspect]
     Active Substance: INSULIN LISPRO
     Dosage: CHANGED 14-20 AT EACH MEAL
     Route: 058
  3. LEVEMIR [Suspect]
     Active Substance: INSULIN DETEMIR
     Indication: TYPE 1 DIABETES MELLITUS
     Dosage: UNK
     Route: 058

REACTIONS (7)
  - Head discomfort [Unknown]
  - Swelling [Unknown]
  - Headache [Unknown]
  - Pruritus [Unknown]
  - Drug hypersensitivity [Unknown]
  - Ear pruritus [Unknown]
  - Rash macular [Unknown]
